FAERS Safety Report 4971561-9 (Version None)
Quarter: 2006Q2

REPORT INFORMATION
  Report Type: 
  Country: None (occurrence: None)
  Receive Date: 20060413
  Receipt Date: 20060404
  Transmission Date: 20061013
  Serious: Yes (Hospitalization)
  Sender: FDA-Public Use
  Company Number: US-JNJFOC-20060401711

PATIENT
  Sex: Male
  Weight: 72.12 kg

DRUGS (18)
  1. DURAGESIC-100 [Suspect]
     Route: 062
  2. NORVASC [Concomitant]
     Indication: BLOOD PRESSURE
     Route: 048
  3. ACYCLOVIR [Concomitant]
     Indication: INFECTION PROPHYLAXIS
     Route: 048
  4. BIAXIN [Concomitant]
     Route: 048
  5. PROVIGIL [Concomitant]
     Indication: NARCOLEPSY
     Route: 048
  6. LEXAPRO [Concomitant]
     Indication: DEPRESSION
     Route: 048
  7. CRIXIVAN [Concomitant]
     Dosage: 2 AT BEDTIME
     Route: 048
  8. NORVIR [Concomitant]
     Dosage: 2 TWICE DAILY.
     Route: 048
  9. DEPAKOTE [Concomitant]
     Indication: MIGRAINE
     Route: 048
  10. COMPAZINE [Concomitant]
     Indication: NAUSEA
     Route: 048
  11. LORTAB [Concomitant]
     Route: 048
  12. LORTAB [Concomitant]
     Indication: BREAKTHROUGH PAIN
     Dosage: 10MG HYDROCODONE BITARTRATE/325MG ACETAMINOPHEN, 4 Q 24 HRS
     Route: 048
  13. SONATA [Concomitant]
     Indication: SLEEP DISORDER
     Route: 048
  14. NASONEX [Concomitant]
     Dosage: 25 UG SOLUTION; SPRAY BILATERALLY TWICE A DAY
     Route: 048
  15. ALBUTEROL [Concomitant]
     Indication: ASTHMA
     Route: 055
  16. IPRATROPIUM BROMIDE [Concomitant]
     Indication: ASTHMA
     Route: 055
  17. CYMBALTA [Concomitant]
     Indication: PAIN
     Route: 048
  18. ALBUTEROL [Concomitant]
     Route: 055

REACTIONS (1)
  - OSTEONECROSIS [None]
